FAERS Safety Report 6656388-4 (Version None)
Quarter: 2010Q1

REPORT INFORMATION
  Report Type: 
  Country: None (occurrence: None)
  Receive Date: 20100324
  Receipt Date: 20100309
  Transmission Date: 20100710
  Serious: Yes (Hospitalization)
  Sender: FDA-Public Use
  Company Number: 1000012540

PATIENT
  Age: 59 Year
  Sex: Female

DRUGS (5)
  1. MILNACIPRAN (MILNACIPRAN HYDROCHLORIDE) (CAPSULES) [Suspect]
     Indication: MAJOR DEPRESSION
     Dosage: 250 MG (250 MG, 1 IN 1 D), ORAL; 200 MG (200 MG, 1 IN 1 D), ORAL
     Route: 048
  2. MILNACIPRAN (MILNACIPRAN HYDROCHLORIDE) (CAPSULES) [Suspect]
     Indication: MAJOR DEPRESSION
     Dosage: 250 MG (250 MG, 1 IN 1 D), ORAL; 200 MG (200 MG, 1 IN 1 D), ORAL
     Route: 048
     Dates: start: 20100201
  3. NEURONTIN [Concomitant]
  4. ABILIFY [Concomitant]
  5. TRAMADOL HCL [Concomitant]

REACTIONS (3)
  - FACIAL PALSY [None]
  - MALIGNANT HYPERTENSION [None]
  - TRANSIENT ISCHAEMIC ATTACK [None]
